FAERS Safety Report 14760526 (Version 3)
Quarter: 2018Q2

REPORT INFORMATION
  Report Type: Report from Study
  Country: JP (occurrence: JP)
  Receive Date: 20180414
  Receipt Date: 20180601
  Transmission Date: 20180711
  Serious: Yes (Death, Hospitalization, Other)
  Sender: FDA-Public Use
  Company Number: JP-AMGEN-JPNCT2017027724

PATIENT
  Age: 77 Year
  Sex: Male
  Weight: 64.3 kg

DRUGS (17)
  1. CALCIUM LEVOFOLINATE [Suspect]
     Active Substance: LEVOLEUCOVORIN CALCIUM
     Indication: COLON CANCER
     Dosage: 350 MG, Q2WEEKS
     Route: 041
     Dates: start: 20161209, end: 20161209
  2. CALCIUM LEVOFOLINATE [Suspect]
     Active Substance: LEVOLEUCOVORIN CALCIUM
     Dosage: 350 MG, Q2WEEKS
     Route: 041
     Dates: start: 20170105, end: 20170522
  3. PANITUMUMAB [Suspect]
     Active Substance: PANITUMUMAB
     Dosage: 380 MG, Q2WK
     Route: 041
     Dates: start: 20170105, end: 20170522
  4. FLUOROURACIL. [Suspect]
     Active Substance: FLUOROURACIL
     Dosage: 4200 MG, Q2WK
     Route: 041
     Dates: start: 20161209, end: 20161209
  5. FLUOROURACIL. [Suspect]
     Active Substance: FLUOROURACIL
     Dosage: 3600 MG, Q2WEEKS
     Route: 041
     Dates: start: 20170105, end: 20170524
  6. MAGNESIUM OXIDE. [Concomitant]
     Active Substance: MAGNESIUM OXIDE
     Dosage: 660 MG, TID
     Route: 048
     Dates: start: 20160224
  7. CLOBETASONE BUTYRATE [Concomitant]
     Active Substance: CLOBETASONE BUTYRATE
     Indication: PROPHYLAXIS
     Dosage: UNK UNK, TID
     Route: 062
     Dates: start: 20161209
  8. PANITUMUMAB [Suspect]
     Active Substance: PANITUMUMAB
     Indication: COLON CANCER
     Dosage: 380 MG, Q2WK
     Route: 041
     Dates: start: 20161209, end: 20161209
  9. MINOCYCLINE HYDROCHLORIDE. [Suspect]
     Active Substance: MINOCYCLINE HYDROCHLORIDE
     Indication: INFECTION PROPHYLAXIS
     Dosage: 100 MG, QD
     Route: 048
     Dates: start: 20161210, end: 20170614
  10. FLUOROURACIL. [Suspect]
     Active Substance: FLUOROURACIL
     Indication: COLON CANCER
     Dosage: 700 MG, Q2WK
     Route: 040
     Dates: start: 20161209, end: 20161209
  11. CLOBETASOL PROPIONATE. [Concomitant]
     Active Substance: CLOBETASOL PROPIONATE
     Indication: PROPHYLAXIS
     Dosage: UNK UNK, TID
     Route: 062
     Dates: start: 20161209
  12. BETAMETHASONE VALERATE W/GENTAMICIN SULFATE [Concomitant]
     Indication: PROPHYLAXIS
     Dosage: UNK
     Route: 065
     Dates: start: 20161209
  13. FLUOROURACIL. [Suspect]
     Active Substance: FLUOROURACIL
     Dosage: 600 MG, Q2WK
     Route: 040
     Dates: start: 20170105, end: 20170522
  14. OXALIPLATIN. [Suspect]
     Active Substance: OXALIPLATIN
     Dosage: 113 MG, Q2WEEKS
     Route: 041
     Dates: start: 20170105, end: 20170522
  15. MUCOPOLYSACCHARIDE POLYSULFURIC ACID ESTER [Concomitant]
     Indication: PROPHYLAXIS
     Dosage: UNK
     Route: 062
     Dates: start: 20161209
  16. FLUDROXYCORTIDE [Concomitant]
     Indication: PROPHYLAXIS
     Dosage: UNK
     Route: 062
     Dates: start: 20170208
  17. OXALIPLATIN. [Suspect]
     Active Substance: OXALIPLATIN
     Indication: COLON CANCER
     Dosage: 140 MG, Q2WEEKS
     Route: 041
     Dates: start: 20161209, end: 20161209

REACTIONS (17)
  - Dry skin [Not Recovered/Not Resolved]
  - Peripheral sensory neuropathy [Not Recovered/Not Resolved]
  - Decreased appetite [Recovered/Resolved]
  - Disseminated intravascular coagulation [Not Recovered/Not Resolved]
  - Dermatitis acneiform [Recovered/Resolved]
  - Constipation [Recovered/Resolved]
  - Insomnia [Recovered/Resolved]
  - Platelet count decreased [Not Recovered/Not Resolved]
  - Nausea [Recovered/Resolved]
  - Skin fissures [Not Recovered/Not Resolved]
  - Decreased appetite [Unknown]
  - Diarrhoea [Recovered/Resolved]
  - Malaise [Unknown]
  - Neutrophil count decreased [Unknown]
  - Interstitial lung disease [Fatal]
  - Stomatitis [Recovered/Resolved]
  - Pigmentation disorder [Not Recovered/Not Resolved]

NARRATIVE: CASE EVENT DATE: 20170613
